FAERS Safety Report 23912742 (Version 2)
Quarter: 2024Q2

REPORT INFORMATION
  Report Type: Spontaneous
  Country: IN (occurrence: None)
  Receive Date: 20240529
  Receipt Date: 20240531
  Transmission Date: 20240715
  Serious: Yes (Other)
  Sender: FDA-Public Use
  Company Number: IN-ROCHE-3568516

PATIENT
  Age: 76 Year
  Sex: Female

DRUGS (1)
  1. ALECENSA [Suspect]
     Active Substance: ALECTINIB HYDROCHLORIDE
     Indication: Lung adenocarcinoma
     Route: 065

REACTIONS (6)
  - Lung carcinoma cell type unspecified stage IV [Unknown]
  - Constipation [Unknown]
  - Somnolence [Unknown]
  - Asthenia [Unknown]
  - Swelling [Unknown]
  - Cough [Unknown]
